FAERS Safety Report 16787931 (Version 3)
Quarter: 2021Q2

REPORT INFORMATION
  Report Type: Report from Study
  Country: JP (occurrence: JP)
  Receive Date: 20190909
  Receipt Date: 20210609
  Transmission Date: 20210716
  Serious: Yes (Hospitalization)
  Sender: FDA-Public Use
  Company Number: PHJP2017JP015935

PATIENT
  Age: 68 Year
  Sex: Female
  Weight: 71.9 kg

DRUGS (37)
  1. KALIMATE [Concomitant]
     Active Substance: CALCIUM POLYSTYRENE SULFONATE
     Indication: HYPERKALAEMIA
     Dosage: 1 DF, TID
     Route: 048
     Dates: start: 20160804
  2. WARFARIN [Concomitant]
     Active Substance: WARFARIN
     Indication: ATRIAL FIBRILLATION
     Dosage: 4.5 MG, QD
     Route: 048
     Dates: start: 20170310
  3. VOGLIBOSE [Concomitant]
     Active Substance: VOGLIBOSE
     Indication: DIABETES MELLITUS
     Dosage: 0.2 MG, TID
     Dates: start: 20170519
  4. XARELTO [Concomitant]
     Active Substance: RIVAROXABAN
     Indication: ATRIAL FIBRILLATION
     Dosage: 15 MG, QD
     Route: 048
     Dates: start: 20190421
  5. NERISONA [Concomitant]
     Active Substance: DIFLUCORTOLONE VALERATE
     Indication: DERMATITIS
     Dosage: AS NEEDED, ADEQUATE DOSE
     Route: 062
     Dates: start: 20161104
  6. ADCIRCA [Concomitant]
     Active Substance: TADALAFIL
     Indication: PULMONARY HYPERTENSION
     Dosage: 20 MG, QD
     Route: 048
     Dates: start: 20150320
  7. JARDIANCE [Concomitant]
     Active Substance: EMPAGLIFLOZIN
     Indication: DIABETES MELLITUS
     Dosage: 10 MG, QD
     Route: 048
     Dates: start: 20190627
  8. CARBOCISTEINE [Concomitant]
     Active Substance: CARBOCYSTEINE
     Indication: SINUSITIS
     Dosage: 500 MG, TID
     Route: 048
     Dates: start: 20180530
  9. RIZABEN [Concomitant]
     Active Substance: TRANILAST
     Indication: CONJUNCTIVITIS ALLERGIC
     Dosage: QID, ADEQUATE DOSE
     Route: 047
     Dates: start: 20171220
  10. JARDIANCE [Concomitant]
     Active Substance: EMPAGLIFLOZIN
     Dosage: 10 MG, QD
     Route: 048
     Dates: start: 20190903
  11. STIBRON [Concomitant]
     Indication: DERMATITIS
     Dosage: AS NEEDED, ADEQUATE DOSE
     Route: 062
     Dates: start: 20190726
  12. HACHIAZULE [Concomitant]
     Indication: PROPHYLAXIS
     Dosage: 2 G PER ADMINISTRATION, AS NEEDED
     Route: 048
     Dates: start: 20180829
  13. ARTIST [Concomitant]
     Active Substance: CARVEDILOL
     Indication: CARDIAC FAILURE
     Dosage: 10 MG, BID
     Route: 048
  14. VOGLIBOSE [Concomitant]
     Active Substance: VOGLIBOSE
     Dosage: 0.2 MG, TID
     Route: 048
     Dates: start: 20160903
  15. TENELIA [Concomitant]
     Active Substance: TENELIGLIPTIN
     Indication: DIABETES MELLITUS
     Dosage: 20 MG, QD
     Route: 048
     Dates: start: 20160825
  16. MYTEAR [Concomitant]
     Indication: DRY EYE
     Dosage: 6QD UNKNOWN
     Route: 047
     Dates: start: 20161019
  17. NOVORAPID [Concomitant]
     Active Substance: INSULIN ASPART
     Indication: DIABETES MELLITUS
     Dosage: 30?2?20?0 UNITS, TID
     Route: 058
     Dates: start: 20181004
  18. GENTAMICIN SULFATE. [Concomitant]
     Active Substance: GENTAMICIN SULFATE
     Indication: DERMATITIS
     Dosage: AS NEEDED, ADEQUATE DOSE
     Route: 062
     Dates: start: 20170313
  19. ENTRESTO [Suspect]
     Active Substance: SACUBITRIL\VALSARTAN
     Indication: CARDIAC FAILURE CHRONIC
     Dosage: UNK
     Route: 048
     Dates: start: 20160909
  20. LCZ696 [Suspect]
     Active Substance: SACUBITRIL\VALSARTAN
     Indication: CARDIAC FAILURE CHRONIC
     Dosage: 50 MG, UNK
     Route: 048
     Dates: start: 20160826
  21. LANIRAPID [Concomitant]
     Active Substance: METILDIGOXIN
     Indication: CARDIAC FAILURE
     Dosage: 0.1 MG, QD
     Route: 048
  22. ALDACTONE?A [Concomitant]
     Active Substance: SPIRONOLACTONE
     Indication: CARDIAC FAILURE
     Dosage: 25 MG, QD
     Route: 048
  23. ZETIA [Concomitant]
     Active Substance: EZETIMIBE
     Indication: DYSLIPIDAEMIA
     Dosage: 10 MG, QD
     Route: 048
     Dates: start: 20130626
  24. LANTUS XR [Concomitant]
     Active Substance: INSULIN GLARGINE
     Indication: DIABETES MELLITUS
     Dosage: 60 MG, BID
     Route: 065
     Dates: start: 20161116
  25. LANTUS XR [Concomitant]
     Active Substance: INSULIN GLARGINE
     Dosage: 40 MG, BID
     Route: 065
     Dates: start: 20190124
  26. TAKECAB [Concomitant]
     Active Substance: VONOPRAZAN FUMARATE
     Indication: GASTRITIS PROPHYLAXIS
     Dosage: 10 MG, QD
     Route: 048
     Dates: start: 20170810
  27. LCZ696 [Suspect]
     Active Substance: SACUBITRIL\VALSARTAN
     Dosage: 100 MG, BID
     Route: 048
     Dates: start: 20190124
  28. LANSOPRAZOLE. [Concomitant]
     Active Substance: LANSOPRAZOLE
     Indication: GASTRITIS PROPHYLAXIS
     Dosage: 15 MG, QD
     Route: 048
     Dates: start: 20080209
  29. GLUFAST [Concomitant]
     Active Substance: MITIGLINIDE
     Indication: DIABETES MELLITUS
     Dosage: 10 MG, TID
     Route: 048
     Dates: start: 20160906
  30. METGLUCO [Concomitant]
     Active Substance: METFORMIN HYDROCHLORIDE
     Indication: DIABETES MELLITUS
     Dosage: 250 MG, TID
     Route: 048
     Dates: start: 20161221
  31. XARELTO [Concomitant]
     Active Substance: RIVAROXABAN
     Dosage: 15 MG, QD
     Route: 048
     Dates: start: 20190903
  32. LOXOPROFEN SODIUM [Concomitant]
     Active Substance: LOXOPROFEN SODIUM
     Indication: LUMBAR SPINAL STENOSIS
     Dosage: AS NEEDED, ADEQUATE DOSE
     Route: 062
     Dates: start: 20160427
  33. HIRUDOID [Concomitant]
     Active Substance: GLYCOSAMINOGLYCANS
     Indication: DRY SKIN PROPHYLAXIS
     Dosage: AS NEEDED, ADEQUATE DOSE
     Route: 062
  34. LCZ696 [Suspect]
     Active Substance: SACUBITRIL\VALSARTAN
     Dosage: 200 MG, BID
     Route: 048
     Dates: start: 20190220
  35. PITAVASTATIN. [Concomitant]
     Active Substance: PITAVASTATIN CALCIUM
     Indication: DYSLIPIDAEMIA
     Dosage: 2 MG, QD
     Route: 048
     Dates: start: 20120418
  36. WARFARIN [Concomitant]
     Active Substance: WARFARIN
     Dosage: 5 MG, QD
     Route: 048
     Dates: start: 20170519
  37. DIART [Concomitant]
     Active Substance: AZOSEMIDE
     Indication: CARDIAC FAILURE
     Dosage: 60 MG, QD
     Route: 048
     Dates: start: 20190508

REACTIONS (2)
  - Large intestine polyp [Recovered/Resolved]
  - Large intestine polyp [Recovered/Resolved]

NARRATIVE: CASE EVENT DATE: 20160905
